FAERS Safety Report 8796217 (Version 2)
Quarter: 2013Q1

REPORT INFORMATION
  Report Type: Report from Study
  Country: US (occurrence: US)
  Receive Date: 20120919
  Receipt Date: 20130130
  Transmission Date: 20140127
  Serious: Yes (Death, Hospitalization)
  Sender: FDA-Public Use
  Company Number: US-BRISTOL-MYERS SQUIBB COMPANY-15166549

PATIENT
  Age: 42 Year
  Sex: Female

DRUGS (6)
  1. IPILIMUMAB [Suspect]
     Indication: MALIGNANT MELANOMA
     Dosage: ALSO 206MG:
     Route: 042
     Dates: start: 20100526, end: 20100616
  2. ABH [Concomitant]
     Dosage: 1 DF= 1 UNIT NOS; EVERY 8 HRS
     Route: 048
     Dates: start: 20100601
  3. FUROSEMIDE [Concomitant]
     Dosage: 1 TAB
     Route: 048
     Dates: start: 20100313
  4. ATIVAN [Concomitant]
     Dosage: TABS; TID
     Dates: start: 20100526
  5. ZOFRAN [Concomitant]
     Indication: NAUSEA
     Dosage: ZOFRAN 8 MG TABS
     Dates: start: 20091201
  6. HYDROCODONE + ACETAMINOPHEN [Concomitant]
     Indication: PAIN
     Dosage: 1 DF = 2.5-500MG TABS, ONE OR TWO EVERY 4 TO 8 HRS

REACTIONS (2)
  - Malignant neoplasm progression [Fatal]
  - Vomiting [Recovered/Resolved]
